FAERS Safety Report 7028408-9 (Version None)
Quarter: 2010Q4

REPORT INFORMATION
  Report Type: 
  Country: None (occurrence: None)
  Receive Date: 20101005
  Receipt Date: 20100922
  Transmission Date: 20110411
  Serious: Yes (Hospitalization)
  Sender: FDA-Public Use
  Company Number: GR-PFIZER INC-2010120725

PATIENT
  Age: 48 Year
  Sex: Female

DRUGS (1)
  1. ZOLOFT [Suspect]
     Indication: GENERALISED ANXIETY DISORDER
     Dosage: 300 MG, 1X/DAY
     Route: 048
     Dates: end: 20100701

REACTIONS (1)
  - BLOOD CREATINE PHOSPHOKINASE INCREASED [None]
